FAERS Safety Report 12639307 (Version 1)
Quarter: 2016Q3

REPORT INFORMATION
  Report Type: Spontaneous
  Country: US (occurrence: US)
  Receive Date: 20160810
  Receipt Date: 20160810
  Transmission Date: 20161109
  Serious: Yes (Other)
  Sender: FDA-Public Use
  Company Number: US-CIPLA LTD.-2016US10237

PATIENT

DRUGS (1)
  1. ABACAVIR. [Suspect]
     Active Substance: ABACAVIR
     Indication: ANTIRETROVIRAL THERAPY
     Dosage: UNK
     Route: 065

REACTIONS (2)
  - Stillbirth [Unknown]
  - Exposure during pregnancy [Unknown]
